FAERS Safety Report 19452002 (Version 1)
Quarter: 2021Q2

REPORT INFORMATION
  Report Type: Spontaneous
  Country: US (occurrence: US)
  Receive Date: 20210623
  Receipt Date: 20210623
  Transmission Date: 20210717
  Serious: Yes (Death)
  Sender: FDA-Public Use
  Company Number: None

PATIENT
  Age: 10 Year
  Sex: Male
  Weight: 23.9 kg

DRUGS (6)
  1. ERWINIA ASPARAGINASE [Suspect]
     Active Substance: ASPARAGINASE ERWINIA CHRYSANTHEMI
     Dates: end: 20210612
  2. CYTARABINE. [Suspect]
     Active Substance: CYTARABINE
     Dates: end: 20210607
  3. ONCASPAR [Suspect]
     Active Substance: PEGASPARGASE
     Dates: end: 20210605
  4. DEXAMETHASONE. [Suspect]
     Active Substance: DEXAMETHASONE
     Dates: end: 20210612
  5. METHOTREXATE. [Suspect]
     Active Substance: METHOTREXATE
     Dates: end: 20210609
  6. VINCRISTINE SULFATE. [Suspect]
     Active Substance: VINCRISTINE SULFATE
     Dates: end: 20210609

REACTIONS (27)
  - Haematemesis [None]
  - Bacterial translocation [None]
  - Clostridial infection [None]
  - Abdominal pain [None]
  - Suprapubic pain [None]
  - Dysuria [None]
  - Cardio-respiratory arrest [None]
  - Back pain [None]
  - Hyperkalaemia [None]
  - Gastrointestinal necrosis [None]
  - Anuria [None]
  - Acidosis [None]
  - Pulmonary oedema [None]
  - Neutropenia [None]
  - Vomiting [None]
  - Multiple organ dysfunction syndrome [None]
  - Blood culture positive [None]
  - Flank pain [None]
  - Abdominal distension [None]
  - Tachyarrhythmia [None]
  - Tachycardia [None]
  - Hyperglycaemia [None]
  - Headache [None]
  - Abdominal pain upper [None]
  - Septic shock [None]
  - Labile blood pressure [None]
  - Capillary nail refill test abnormal [None]

NARRATIVE: CASE EVENT DATE: 20210613
